FAERS Safety Report 9262530 (Version 1)
Quarter: 2013Q2

REPORT INFORMATION
  Report Type: Report from Study
  Country: IT (occurrence: IT)
  Receive Date: 20130430
  Receipt Date: 20130430
  Transmission Date: 20140414
  Serious: Yes (Life-Threatening, Hospitalization)
  Sender: FDA-Public Use
  Company Number: IT-BAYER-2012-092453

PATIENT
  Age: 71 Year
  Sex: Male
  Weight: 68 kg

DRUGS (13)
  1. REGORAFENIB [Suspect]
     Indication: COLORECTAL CANCER METASTATIC
     Dosage: 160 MG, QD
     Route: 048
     Dates: start: 20120813, end: 20120829
  2. REGORAFENIB [Suspect]
     Indication: COLORECTAL CANCER METASTATIC
     Dosage: 160 MG, QD
     Route: 048
     Dates: start: 20120813, end: 20120829
  3. REGORAFENIB [Suspect]
     Indication: COLORECTAL CANCER METASTATIC
     Dosage: 160 MG, QD
     Route: 048
     Dates: start: 20120813, end: 20120829
  4. LANSOPRAZOLE [Suspect]
     Indication: PROPHYLAXIS
     Dosage: TOTAL DAILY DOSE 15 MG
     Route: 048
     Dates: start: 20120813, end: 20120829
  5. XATRAL [Concomitant]
     Indication: BENIGN PROSTATIC HYPERPLASIA
     Dosage: TOTAL DAILY DOSE 10 MG
     Route: 048
     Dates: start: 20120222, end: 20120904
  6. ANTRA [Concomitant]
     Indication: PROPHYLAXIS
     Dosage: TOTAL DAILY DOSE 40 MG
     Route: 042
     Dates: start: 20120904, end: 20120910
  7. RANITIDINA [Concomitant]
     Indication: PROPHYLAXIS
     Dosage: DAILY DOSE 100 MG
     Route: 042
     Dates: start: 20120911, end: 20120924
  8. RANITIDINA [Concomitant]
     Indication: PROPHYLAXIS
     Dosage: 300 MG/DIE
     Route: 048
     Dates: start: 20120925, end: 201210
  9. HALOPERIDOL [Concomitant]
     Indication: SEDATIVE THERAPY
     Dosage: 6GGT/DIE
     Route: 048
     Dates: start: 20120904, end: 201210
  10. LAEVOLAC [Concomitant]
     Indication: CONSTIPATION
     Dosage: DAILY DOSE 40 ML
     Route: 048
     Dates: start: 20120904, end: 20120920
  11. FONDAPARINUX [Concomitant]
     Indication: THROMBOSIS PROPHYLAXIS
     Dosage: DAILY DOSE 2.5 MG
     Route: 058
     Dates: start: 20120904
  12. CISTALGAN [FLAVOXATE HYDROCHLORIDE,PROPYPHENAZONE] [Concomitant]
     Indication: CYSTITIS
     Dosage: 500 MG + 75 MG/DIE
     Route: 048
     Dates: start: 20120913, end: 201210
  13. ARIXTRA [Concomitant]
     Indication: THROMBOSIS PROPHYLAXIS
     Dosage: UNK
     Route: 058
     Dates: start: 20120904, end: 201210

REACTIONS (2)
  - Toxic epidermal necrolysis [Recovered/Resolved with Sequelae]
  - Pyrexia [Not Recovered/Not Resolved]
